FAERS Safety Report 20925862 (Version 1)
Quarter: 2022Q2

REPORT INFORMATION
  Report Type: Report from Study
  Country: US (occurrence: US)
  Receive Date: 20220607
  Receipt Date: 20220607
  Transmission Date: 20220721
  Serious: Yes (Hospitalization, Other)
  Sender: FDA-Public Use
  Company Number: US-UCBSA-2022030378

PATIENT
  Age: 28 Year
  Sex: Female
  Weight: 56.8 kg

DRUGS (13)
  1. CERTOLIZUMAB PEGOL [Suspect]
     Active Substance: CERTOLIZUMAB PEGOL
     Indication: Crohn^s disease
     Dosage: 400 MILLIGRAM, MONTHLY (QM)
     Dates: start: 20131015, end: 20151008
  2. DIETARY SUPPLEMENT [Concomitant]
     Active Substance: DIETARY SUPPLEMENT
     Indication: Vitamin supplementation
     Dosage: 1 DOSAGE FORM, ONCE DAILY (QD)
     Route: 048
     Dates: start: 20150105, end: 20151008
  3. INFLUENZA VIRUS VACCINE [Concomitant]
     Active Substance: INFLUENZA VIRUS VACCINE
     Indication: Product used for unknown indication
     Dosage: 1 SHOT, 1 DAY
     Dates: start: 20150831, end: 20150831
  4. FOLIC ACID [Concomitant]
     Active Substance: FOLIC ACID
     Indication: Product used for unknown indication
     Dosage: 1 DOSAGE FORM, ONCE DAILY (QD)
     Route: 048
     Dates: start: 20150205, end: 20150715
  5. IRON\VITAMIN B [Concomitant]
     Active Substance: IRON\VITAMIN B
     Indication: Product used for unknown indication
     Dosage: 1 DOSAGE FORM, ONCE DAILY (QD)
     Route: 048
     Dates: start: 20150716, end: 20151008
  6. MIRALAX [Concomitant]
     Active Substance: POLYETHYLENE GLYCOL 3350
     Indication: Constipation
     Dosage: 1 TABLESPOON, 1 DAY
     Route: 048
     Dates: start: 20150630, end: 20150630
  7. MORPHINE [Concomitant]
     Active Substance: MORPHINE
     Indication: Pain
     Dosage: UNK UNK, ONCE DAILY (QD)
     Route: 042
     Dates: start: 20150315, end: 20150315
  8. MORPHINE [Concomitant]
     Active Substance: MORPHINE
     Dosage: UNK UNK, ONCE DAILY (QD)
     Route: 042
     Dates: start: 20150601, end: 20150601
  9. PRENATAL MULTIVITAMIN + DHA [Concomitant]
     Indication: Product used for unknown indication
     Dosage: 1 DOSAGE FORM, ONCE DAILY (QD)
     Route: 048
     Dates: start: 20150105, end: 20151008
  10. TETANUS TOXOID, REDUCED DIPHTHERIA TOXOID AND ACELLULAR PERTUSSIS VACC [Concomitant]
     Active Substance: TETANUS TOXOID, REDUCED DIPHTHERIA TOXOID AND ACELLULAR PERTUSSIS VACCINE ADSORBED, TDAP
     Indication: Product used for unknown indication
     Dosage: 1 SHOT, 1 DAY
     Dates: start: 20150817, end: 20150817
  11. ZOFRAN [Concomitant]
     Active Substance: ONDANSETRON HYDROCHLORIDE
     Indication: Pain
     Dosage: UNK UNK, ONCE DAILY (QD)
     Route: 042
     Dates: start: 20150315, end: 20150315
  12. ZOFRAN [Concomitant]
     Active Substance: ONDANSETRON HYDROCHLORIDE
     Dosage: UNK UNK, ONCE DAILY (QD)
     Route: 042
     Dates: start: 20150601, end: 20150601
  13. IRON [Concomitant]
     Active Substance: IRON
     Indication: Product used for unknown indication
     Dosage: 2 PILL, 1 DAY
     Route: 048
     Dates: start: 20150628, end: 20150701

REACTIONS (6)
  - Crohn^s disease [Unknown]
  - Placenta praevia [Unknown]
  - Procedural pain [Unknown]
  - Caesarean section [Unknown]
  - Maternal exposure before pregnancy [Unknown]
  - Maternal exposure during pregnancy [Unknown]

NARRATIVE: CASE EVENT DATE: 20150119
